FAERS Safety Report 9556885 (Version 2)
Quarter: 2013Q4

REPORT INFORMATION
  Report Type: Spontaneous
  Country: FR (occurrence: FR)
  Receive Date: 20130926
  Receipt Date: 20131004
  Transmission Date: 20140711
  Serious: Yes (Life-Threatening, Hospitalization)
  Sender: FDA-Public Use
  Company Number: FR-PFIZER INC-2013274663

PATIENT
  Age: 67 Year
  Sex: Male
  Weight: 107 kg

DRUGS (4)
  1. ALDACTONE [Suspect]
     Indication: HYPERTENSION
     Dosage: 50 MG, 1X/DAY
     Route: 048
     Dates: start: 201303, end: 20130707
  2. ATORVASTATIN CALCIUM [Suspect]
     Dosage: UNK
     Route: 048
     Dates: end: 20130705
  3. OLMETEC [Suspect]
     Dosage: 40 MG, DAILY
     Route: 048
     Dates: end: 20130707
  4. VOLTARENE [Suspect]
     Dosage: 100 MG, 1X/DAY
     Route: 048
     Dates: end: 20130707

REACTIONS (1)
  - Hyperkalaemia [Recovered/Resolved]
